FAERS Safety Report 6499827-4 (Version None)
Quarter: 2009Q4

REPORT INFORMATION
  Report Type: 
  Country: None (occurrence: None)
  Receive Date: 20091214
  Receipt Date: 20091202
  Transmission Date: 20100525
  Serious: Yes (Other)
  Sender: FDA-Public Use
  Company Number: 2009SP039714

PATIENT
  Sex: Female

DRUGS (2)
  1. IMPLANON [Suspect]
     Indication: DRUG USE FOR UNKNOWN INDICATION
     Dosage: 1 DF;
     Dates: start: 20090923
  2. IUD [Concomitant]

REACTIONS (5)
  - ABORTION SPONTANEOUS [None]
  - HAEMORRHAGE [None]
  - MUSCLE SPASMS [None]
  - PREGNANCY [None]
  - PREGNANCY WITH IMPLANT CONTRACEPTIVE [None]
